FAERS Safety Report 6658939-2 (Version None)
Quarter: 2010Q1

REPORT INFORMATION
  Report Type: 
  Country: None (occurrence: None)
  Receive Date: 20100330
  Receipt Date: 20100312
  Transmission Date: 20100710
  Serious: No
  Sender: FDA-Public Use
  Company Number: US-BIOGENIDEC-2010BI008703

PATIENT
  Age: 44 Year
  Sex: Male

DRUGS (1)
  1. TYSABRI [Suspect]
     Indication: MULTIPLE SCLEROSIS
     Route: 042
     Dates: start: 20090930

REACTIONS (6)
  - ASTHENIA [None]
  - HEADACHE [None]
  - HYPERACUSIS [None]
  - HYPOAESTHESIA [None]
  - PHOTOSENSITIVITY REACTION [None]
  - SWOLLEN TONGUE [None]
